FAERS Safety Report 6274534-1 (Version None)
Quarter: 2009Q3

REPORT INFORMATION
  Report Type: 
  Country: None (occurrence: None)
  Receive Date: 20090720
  Receipt Date: 20090708
  Transmission Date: 20100115
  Serious: Yes (Hospitalization)
  Sender: FDA-Public Use
  Company Number: FR-MERCK-0907FRA00026

PATIENT
  Age: 87 Year
  Sex: Female

DRUGS (5)
  1. PRIMAXIN [Suspect]
     Indication: INFECTION
     Route: 030
     Dates: start: 20090417, end: 20090515
  2. PRIMAXIN [Suspect]
     Route: 030
     Dates: start: 20090411, end: 20090413
  3. VANCOMYCIN [Concomitant]
     Indication: INFECTION
     Route: 042
     Dates: start: 20090417, end: 20090509
  4. FLUCONAZOLE [Concomitant]
     Indication: INFECTION
     Route: 065
     Dates: start: 20090507, end: 20090511
  5. INVANZ [Concomitant]
     Indication: INFECTION
     Route: 051
     Dates: start: 20090414, end: 20090416

REACTIONS (2)
  - DERMATITIS EXFOLIATIVE [None]
  - EOSINOPHILIA [None]
